FAERS Safety Report 21423982 (Version 1)
Quarter: 2022Q4

REPORT INFORMATION
  Report Type: Spontaneous
  Country: US (occurrence: None)
  Receive Date: 20221006
  Receipt Date: 20221006
  Transmission Date: 20230113
  Serious: No
  Sender: FDA-Public Use
  Company Number: None

PATIENT
  Sex: Female
  Weight: 93.44 kg

DRUGS (8)
  1. INLYTA [Suspect]
     Active Substance: AXITINIB
     Indication: Renal cancer
     Dosage: FREQUENCY : TWICE A DAY;?
     Route: 048
     Dates: start: 20220830
  2. FUROSEMIDE [Concomitant]
     Active Substance: FUROSEMIDE
  3. GABAPENTIN [Concomitant]
     Active Substance: GABAPENTIN
  4. KLOR-CON M10 [Concomitant]
     Active Substance: POTASSIUM CHLORIDE
  5. LISINOPRIL [Concomitant]
     Active Substance: LISINOPRIL
  6. METOPROLOL [Concomitant]
     Active Substance: METOPROLOL
  7. NORCO [Concomitant]
     Active Substance: ACETAMINOPHEN\HYDROCODONE BITARTRATE
  8. ROSUVASTATIN [Concomitant]
     Active Substance: ROSUVASTATIN

REACTIONS (1)
  - Cerebrovascular accident [None]
